FAERS Safety Report 12889320 (Version 1)
Quarter: 2016Q4

REPORT INFORMATION
  Report Type: Spontaneous
  Country: US (occurrence: US)
  Receive Date: 20161027
  Receipt Date: 20161027
  Transmission Date: 20170207
  Serious: No
  Sender: FDA-Public Use
  Company Number: US-PERRIGO-16US017891

PATIENT
  Sex: Male

DRUGS (2)
  1. CICLOPIROX. [Suspect]
     Active Substance: CICLOPIROX
     Indication: ONYCHOMYCOSIS
     Dosage: UNKNOWN, 1 TO 2 TIMES, QD
     Route: 061
     Dates: start: 2007, end: 20070917
  2. CICLOPIROX. [Suspect]
     Active Substance: CICLOPIROX
     Indication: ONYCHOMYCOSIS
     Dosage: UNKNOWN, 1 TO 2 TIMES QD
     Route: 061
     Dates: start: 20070918, end: 2016

REACTIONS (2)
  - Inappropriate schedule of drug administration [Recovered/Resolved]
  - Drug ineffective [Unknown]
